FAERS Safety Report 8471017-5 (Version None)
Quarter: 2012Q2

REPORT INFORMATION
  Report Type: 
  Country: None (occurrence: None)
  Receive Date: 20120323
  Receipt Date: 20111130
  Transmission Date: 20120825
  Serious: Yes (Other)
  Sender: FDA-Public Use
  Company Number: 163-21880-11110688

PATIENT
  Age: 74 Year
  Sex: Female
  Weight: 72.1 kg

DRUGS (3)
  1. REVLIMID [Suspect]
     Indication: MULTIPLE MYELOMA
     Dosage: 20 MG, 2 IN 1 D PO; 25 MG, 1 IN 1 D, PO; 5 MG, 1 IN 2 D, PO
     Route: 048
     Dates: start: 20110728
  2. REVLIMID [Suspect]
     Indication: MULTIPLE MYELOMA
     Dosage: 20 MG, 2 IN 1 D PO; 25 MG, 1 IN 1 D, PO; 5 MG, 1 IN 2 D, PO
     Route: 048
     Dates: start: 20110715, end: 20110727
  3. REVLIMID [Suspect]
     Indication: MULTIPLE MYELOMA
     Dosage: 20 MG, 2 IN 1 D PO; 25 MG, 1 IN 1 D, PO; 5 MG, 1 IN 2 D, PO
     Route: 048
     Dates: start: 20111101

REACTIONS (5)
  - WHITE BLOOD CELL COUNT DECREASED [None]
  - NEUTROPHIL COUNT DECREASED [None]
  - HAEMOGLOBIN DECREASED [None]
  - PLATELET COUNT DECREASED [None]
  - PANCYTOPENIA [None]
